FAERS Safety Report 4608331-7 (Version None)
Quarter: 2005Q2

REPORT INFORMATION
  Report Type: 
  Country: None (occurrence: None)
  Receive Date: 20050301
  Receipt Date: 20040423
  Transmission Date: 20051028
  Serious: Yes (Other)
  Sender: FDA-Public Use
  Company Number: BDI-006086

PATIENT
  Age: 45 Year
  Sex: Female

DRUGS (2)
  1. ISOVUE-300 [Suspect]
     Indication: COMPUTERISED TOMOGRAM ABDOMEN
     Dosage: 10 ML ONCE IV
     Route: 042
     Dates: start: 20040410, end: 20040410
  2. ISOVUE-300 [Suspect]
     Indication: PANCREATITIS ACUTE
     Dosage: 10 ML ONCE IV
     Route: 042
     Dates: start: 20040410, end: 20040410

REACTIONS (2)
  - CHEST DISCOMFORT [None]
  - DYSPNOEA [None]
